FAERS Safety Report 13005208 (Version 1)
Quarter: 2016Q4

REPORT INFORMATION
  Report Type: Spontaneous
  Country: US (occurrence: US)
  Receive Date: 20161207
  Receipt Date: 20161207
  Transmission Date: 20170207
  Serious: No
  Sender: FDA-Public Use
  Company Number: US-TEVA-698385USA

PATIENT
  Age: 69 Year
  Sex: Male
  Weight: 81.63 kg

DRUGS (3)
  1. TRIAMCINOLON [Concomitant]
     Dates: start: 201608
  2. GUAIFENESIN W/PSEUDOEPHEDRINE [Suspect]
     Active Substance: GUAIFENESIN\PSEUDOEPHEDRINE HYDROCHLORIDE
     Indication: SINUS CONGESTION
     Dosage: 120 MILLIGRAM DAILY;
     Route: 048
     Dates: start: 20160827, end: 20160831
  3. ANALGESICS [Concomitant]
     Active Substance: UNSPECIFIED INGREDIENT
     Dates: start: 201608

REACTIONS (2)
  - Drug effect variable [Unknown]
  - Underdose [Unknown]

NARRATIVE: CASE EVENT DATE: 201608
